FAERS Safety Report 25668471 (Version 2)
Quarter: 2025Q3

REPORT INFORMATION
  Report Type: Spontaneous
  Country: EU (occurrence: EU)
  Receive Date: 20250812
  Receipt Date: 20250814
  Transmission Date: 20251021
  Serious: Yes (Other)
  Sender: HETERO
  Company Number: None

PATIENT
  Age: 38 Year
  Sex: Female

DRUGS (4)
  1. LEVOFLOXACIN [Suspect]
     Active Substance: LEVOFLOXACIN
     Indication: Abscess of salivary gland
     Route: 048
     Dates: start: 20250614, end: 20250618
  2. DEXKETOPROFEN [Suspect]
     Active Substance: DEXKETOPROFEN
     Indication: Abscess of salivary gland
     Route: 048
     Dates: start: 20250614, end: 20250618
  3. METAMIZOLE [Suspect]
     Active Substance: METAMIZOLE
     Indication: Abscess of salivary gland
     Route: 048
     Dates: start: 20250614, end: 20250618
  4. CLINDAMYCIN [Suspect]
     Active Substance: CLINDAMYCIN
     Indication: Abscess of salivary gland
     Route: 048
     Dates: start: 20250609, end: 20250618

REACTIONS (3)
  - Rash maculo-papular [Recovered/Resolved]
  - Eosinophilia [Recovered/Resolved]
  - Off label use [Unknown]

NARRATIVE: CASE EVENT DATE: 20250617
